FAERS Safety Report 9012906 (Version 1)
Quarter: 2013Q1

REPORT INFORMATION
  Report Type: Spontaneous
  Country: US (occurrence: US)
  Receive Date: 20130114
  Receipt Date: 20130114
  Transmission Date: 20140127
  Serious: No
  Sender: FDA-Public Use
  Company Number: US-ROXANE LABORATORIES, INC.-2013-RO-00023RO

PATIENT
  Sex: Female
  Weight: 53 kg

DRUGS (2)
  1. CODEINE SULFATE [Suspect]
  2. HORMONES [Concomitant]

REACTIONS (1)
  - Hypersensitivity [Unknown]
